FAERS Safety Report 21292771 (Version 4)
Quarter: 2022Q4

REPORT INFORMATION
  Report Type: Report from Study
  Country: None (occurrence: CN)
  Receive Date: 20220905
  Receipt Date: 20221026
  Transmission Date: 20230113
  Serious: Yes (Hospitalization)
  Sender: FDA-Public Use
  Company Number: CN-Jiangsu Hengrui Medicine Co., Ltd.-2132549

PATIENT
  Age: 36 Year
  Sex: Female
  Weight: 60 kg

DRUGS (7)
  1. OXALIPLATIN [Suspect]
     Active Substance: OXALIPLATIN
     Indication: Gastric cancer
     Route: 041
     Dates: start: 20220627, end: 20220809
  2. UNSPECIFIED INGREDIENT [Suspect]
     Active Substance: UNSPECIFIED INGREDIENT
     Route: 041
     Dates: start: 20220627, end: 20220809
  3. CAPECITABINE [Suspect]
     Active Substance: CAPECITABINE
     Route: 048
     Dates: start: 20220627, end: 20220823
  4. GLUCUROLACTONE [Concomitant]
     Active Substance: GLUCUROLACTONE
     Route: 048
     Dates: start: 20220728
  5. BIFENDATE [Concomitant]
     Active Substance: BIFENDATE
     Route: 048
     Dates: start: 20220728
  6. ILAPRAZOLE [Concomitant]
     Active Substance: ILAPRAZOLE
     Route: 048
     Dates: start: 20220810
  7. TRAMADOL HYDROCHLORIDE [Concomitant]
     Active Substance: TRAMADOL HYDROCHLORIDE
     Route: 048
     Dates: start: 20220813

REACTIONS (2)
  - Asthenia [Recovered/Resolved]
  - Decreased appetite [Recovered/Resolved]

NARRATIVE: CASE EVENT DATE: 20220818
